FAERS Safety Report 4508129-4 (Version None)
Quarter: 2004Q4

REPORT INFORMATION
  Report Type: 
  Country: None (occurrence: None)
  Receive Date: 20041123
  Receipt Date: 20031022
  Transmission Date: 20050328
  Serious: No
  Sender: FDA-Public Use
  Company Number: US-GLAXOSMITHKLINE-A0431168A

PATIENT
  Age: 47 Year
  Sex: Female

DRUGS (4)
  1. WELLBUTRIN [Suspect]
     Indication: DEPRESSION
     Dosage: 100MG TWICE PER DAY
     Route: 048
     Dates: start: 20030401
  2. TOPAMAX [Concomitant]
  3. LEVOXYL [Concomitant]
  4. ZYPREXA [Concomitant]

REACTIONS (1)
  - AMENORRHOEA [None]
